FAERS Safety Report 10388991 (Version 1)
Quarter: 2014Q3

REPORT INFORMATION
  Report Type: Spontaneous
  Country: US (occurrence: None)
  Receive Date: 20140812
  Receipt Date: 20140812
  Transmission Date: 20150326
  Serious: Yes (Other)
  Sender: FDA-Public Use
  Company Number: SYM-2014-24002

PATIENT
  Age: 73 Year
  Sex: Female
  Weight: 86.18 kg

DRUGS (10)
  1. LASIX [Suspect]
     Active Substance: FUROSEMIDE
     Indication: HYPERTENSION
  2. TEKTURNA [Suspect]
     Active Substance: ALISKIREN HEMIFUMARATE
     Indication: HYPERTENSION
  3. MELOXICAM (MELOXICAM) [Concomitant]
     Active Substance: MELOXICAM
  4. CARDIZEM [Suspect]
     Active Substance: DILTIAZEM HYDROCHLORIDE
     Indication: HYPERTENSION
  5. METOPROLOL TARTRATE (METOPROLOL TARTRATE) (METOPROLOL TARTRATE) [Suspect]
     Active Substance: METOPROLOL TARTRATE
     Indication: HYPERTENSION
  6. NEXIUM [Concomitant]
     Active Substance: ESOMEPRAZOLE MAGNESIUM
  7. AVAPRO [Suspect]
     Active Substance: IRBESARTAN
     Indication: HYPERTENSION
  8. LOSARTAN (LOSARTAN) [Suspect]
     Active Substance: LOSARTAN
     Indication: HYPERTENSION
  9. ATENOLOL (ATENOLOL) [Suspect]
     Active Substance: ATENOLOL
     Indication: HYPERTENSION
  10. BYSTOLIC [Suspect]
     Active Substance: NEBIVOLOL HYDROCHLORIDE
     Indication: HYPERTENSION

REACTIONS (5)
  - Nervous system disorder [None]
  - Palpitations [None]
  - Heart rate increased [None]
  - Chest pain [None]
  - Angioedema [None]
